FAERS Safety Report 4662366-7 (Version None)
Quarter: 2005Q2

REPORT INFORMATION
  Report Type: 
  Country: None (occurrence: None)
  Receive Date: 20050516
  Receipt Date: 20050504
  Transmission Date: 20051028
  Serious: Yes (Death)
  Sender: FDA-Public Use
  Company Number: US-JNJFOC-20050502668

PATIENT
  Age: 17 Year
  Sex: Female

DRUGS (2)
  1. DURAGESIC-100 [Suspect]
     Route: 062
  2. DARVON [Suspect]
     Route: 065

REACTIONS (2)
  - OFF LABEL USE [None]
  - RESPIRATORY DISTRESS [None]
